FAERS Safety Report 8156381-9 (Version None)
Quarter: 2012Q1

REPORT INFORMATION
  Report Type: 
  Country: None (occurrence: None)
  Receive Date: 20120221
  Receipt Date: 20120221
  Transmission Date: 20120608
  Serious: Yes (Life-Threatening, Hospitalization)
  Sender: FDA-Public Use
  Company Number: None

PATIENT
  Sex: Male
  Weight: 77 kg

DRUGS (4)
  1. ALIMTA [Suspect]
     Indication: MESOTHELIOMA
     Dosage: 1000 MG EVERY 3 WEEKS IV
     Route: 042
     Dates: start: 20100729, end: 20101227
  2. ALIMTA [Suspect]
     Indication: MESOTHELIOMA
     Dosage: 1000 MG EVERY 3 WEEKS IV
     Route: 042
     Dates: start: 20111206, end: 20120130
  3. ALOXI [Suspect]
     Indication: ANTIEMETIC SUPPORTIVE CARE
     Dosage: 0.25 MG EVERY 3 WEEKS IV
     Route: 042
  4. CISPLATIN [Concomitant]

REACTIONS (4)
  - STRIDOR [None]
  - PULSE ABSENT [None]
  - PRURITUS [None]
  - UNRESPONSIVE TO STIMULI [None]
